FAERS Safety Report 6215547-5 (Version None)
Quarter: 2009Q2

REPORT INFORMATION
  Report Type: 
  Country: None (occurrence: None)
  Receive Date: 20090605
  Receipt Date: 20070503
  Transmission Date: 20091009
  Serious: Yes (Hospitalization, Other)
  Sender: FDA-Public Use
  Company Number: US-ASTRAZENECA-2006UW26139

PATIENT
  Age: 6859 Day
  Sex: Male
  Weight: 104.8 kg

DRUGS (8)
  1. SEROQUEL [Suspect]
     Indication: ABNORMAL BEHAVIOUR
     Dosage: 25 MG, 75 MG AND 100 MG
     Route: 048
     Dates: start: 20050503, end: 20051225
  2. SEROQUEL [Suspect]
     Dosage: 25 MG, 100 MG
     Route: 048
     Dates: start: 20051226
  3. ABILIFY [Concomitant]
     Dates: start: 20050401
  4. RISPERDAL [Concomitant]
  5. ZYPREXA [Concomitant]
  6. CLONIDINE [Concomitant]
     Indication: ATTENTION DEFICIT/HYPERACTIVITY DISORDER
     Route: 048
     Dates: start: 20030811
  7. TOPIRAMATE [Concomitant]
     Route: 048
     Dates: start: 20051227
  8. CAPTOPRIL [Concomitant]
     Indication: HYPERTENSION
     Route: 048
     Dates: start: 20060102

REACTIONS (7)
  - CONVULSION [None]
  - DIABETIC KETOACIDOSIS [None]
  - PANCREATITIS [None]
  - PANCREATITIS ACUTE [None]
  - PLEURAL EFFUSION [None]
  - RESPIRATORY DISORDER [None]
  - TYPE 2 DIABETES MELLITUS [None]
